FAERS Safety Report 7785768-9 (Version None)
Quarter: 2011Q3

REPORT INFORMATION
  Report Type: 
  Country: None (occurrence: None)
  Receive Date: 20110929
  Receipt Date: 20110919
  Transmission Date: 20111222
  Serious: Yes (Life-Threatening)
  Sender: FDA-Public Use
  Company Number: OM-BRISTOL-MYERS SQUIBB COMPANY-16107872

PATIENT
  Age: 40 Year
  Sex: Male
  Weight: 89 kg

DRUGS (2)
  1. CEFUROXIME [Suspect]
     Indication: RESPIRATORY TRACT INFECTION
     Route: 048
     Dates: start: 20110101
  2. GLUCOPHAGE XR [Suspect]
     Indication: METABOLIC DISORDER
     Route: 048
     Dates: start: 20110101

REACTIONS (6)
  - COUGH [None]
  - DRUG INTERACTION [None]
  - ABASIA [None]
  - MICTURITION DISORDER [None]
  - CHEST PAIN [None]
  - PALPITATIONS [None]
